FAERS Safety Report 15173275 (Version 56)
Quarter: 2025Q4

REPORT INFORMATION
  Report Type: Spontaneous
  Country: CA (occurrence: CA)
  Receive Date: 20180720
  Receipt Date: 20251208
  Transmission Date: 20260117
  Serious: Yes (Other)
  Sender: BAUSCH AND LOMB
  Company Number: CA-FERRINGPH-2018FE03810

PATIENT
  Age: 53 Year
  Sex: Male

DRUGS (592)
  1. METFORMIN [Suspect]
     Active Substance: METFORMIN HYDROCHLORIDE
     Indication: Product used for unknown indication
     Dosage: 2 EVERY 1 DAY
     Route: 065
  2. METFORMIN [Suspect]
     Active Substance: METFORMIN HYDROCHLORIDE
     Route: 065
  3. METFORMIN [Suspect]
     Active Substance: METFORMIN HYDROCHLORIDE
     Dosage: 3 ADMINISTRATIONS
     Route: 065
  4. METFORMIN [Suspect]
     Active Substance: METFORMIN HYDROCHLORIDE
     Route: 065
  5. METFORMIN [Suspect]
     Active Substance: METFORMIN HYDROCHLORIDE
     Dosage: METFORMIN HYDROCHLORIDE
     Route: 065
  6. METFORMIN [Suspect]
     Active Substance: METFORMIN HYDROCHLORIDE
     Route: 065
  7. METFORMIN [Suspect]
     Active Substance: METFORMIN HYDROCHLORIDE
     Route: 065
  8. METFORMIN [Suspect]
     Active Substance: METFORMIN HYDROCHLORIDE
     Route: 065
  9. METFORMIN [Suspect]
     Active Substance: METFORMIN HYDROCHLORIDE
     Route: 065
  10. METFORMIN [Suspect]
     Active Substance: METFORMIN HYDROCHLORIDE
     Route: 065
  11. METFORMIN [Suspect]
     Active Substance: METFORMIN HYDROCHLORIDE
     Route: 065
  12. BUDESONIDE [Suspect]
     Active Substance: BUDESONIDE
     Indication: Colitis ulcerative
     Dosage: 1 DF, 1 TIME DAILY (PROLONGED-RELEASE TABLET)
     Route: 048
     Dates: start: 20170701
  13. BUDESONIDE [Suspect]
     Active Substance: BUDESONIDE
     Dosage: 8 DOSAGE FORM, Q8WEEKS (PROLONGED-RELEASE TABLET)
     Route: 048
     Dates: start: 200707
  14. BUDESONIDE [Suspect]
     Active Substance: BUDESONIDE
     Route: 048
  15. BUDESONIDE [Suspect]
     Active Substance: BUDESONIDE
     Route: 048
  16. BUDESONIDE [Suspect]
     Active Substance: BUDESONIDE
     Route: 048
  17. BUDESONIDE [Suspect]
     Active Substance: BUDESONIDE
     Dosage: 2 ADMINISTRATIONS
     Route: 048
  18. BUDESONIDE [Suspect]
     Active Substance: BUDESONIDE
     Dosage: 17 ADMINISTRATIONS
     Route: 048
  19. BUDESONIDE [Suspect]
     Active Substance: BUDESONIDE
     Route: 048
  20. BUDESONIDE [Suspect]
     Active Substance: BUDESONIDE
     Route: 048
  21. BUDESONIDE [Suspect]
     Active Substance: BUDESONIDE
     Dosage: 2 ADMINISTRATIONS
     Route: 048
  22. BUDESONIDE [Suspect]
     Active Substance: BUDESONIDE
     Dosage: 2 ADMINISTRATIONS
     Route: 048
  23. BUDESONIDE [Suspect]
     Active Substance: BUDESONIDE
     Dosage: 3 ADMINISTRATIONS
     Route: 048
  24. BUDESONIDE [Suspect]
     Active Substance: BUDESONIDE
     Dosage: 2 ADMINISTRATIONS
     Route: 048
  25. BUDESONIDE [Suspect]
     Active Substance: BUDESONIDE
     Route: 048
  26. BUDESONIDE [Suspect]
     Active Substance: BUDESONIDE
     Route: 048
  27. BUDESONIDE [Suspect]
     Active Substance: BUDESONIDE
     Route: 048
  28. BUDESONIDE [Suspect]
     Active Substance: BUDESONIDE
     Route: 065
  29. BUDESONIDE [Suspect]
     Active Substance: BUDESONIDE
     Dosage: 2 ADMINISTRATIONS
     Route: 048
  30. BUDESONIDE [Suspect]
     Active Substance: BUDESONIDE
     Route: 048
  31. BUDESONIDE [Suspect]
     Active Substance: BUDESONIDE
     Dosage: 3 ADMINISTRATIONS
     Route: 065
  32. BUDESONIDE [Suspect]
     Active Substance: BUDESONIDE
     Route: 065
  33. BUDESONIDE [Suspect]
     Active Substance: BUDESONIDE
     Route: 048
  34. BUDESONIDE [Suspect]
     Active Substance: BUDESONIDE
     Dosage: 2 ADMINISTRATIONS
     Route: 048
  35. BUDESONIDE [Suspect]
     Active Substance: BUDESONIDE
     Route: 065
  36. BUDESONIDE [Suspect]
     Active Substance: BUDESONIDE
     Route: 065
  37. BUDESONIDE [Suspect]
     Active Substance: BUDESONIDE
     Dosage: 2 ADMINISTRATIONS
     Route: 048
  38. BUDESONIDE [Suspect]
     Active Substance: BUDESONIDE
     Route: 048
  39. BUDESONIDE [Suspect]
     Active Substance: BUDESONIDE
     Dosage: 2 DOSAGE GIVEN
     Route: 048
  40. BUDESONIDE [Suspect]
     Active Substance: BUDESONIDE
     Route: 065
  41. BUDESONIDE [Suspect]
     Active Substance: BUDESONIDE
     Route: 065
  42. BUDESONIDE [Suspect]
     Active Substance: BUDESONIDE
     Route: 048
  43. BUDESONIDE [Suspect]
     Active Substance: BUDESONIDE
     Dosage: NOT SPECIFIED
     Route: 048
  44. BUDESONIDE [Suspect]
     Active Substance: BUDESONIDE
     Dosage: 4 EVERY 1 DAY
     Route: 065
  45. BUDESONIDE [Suspect]
     Active Substance: BUDESONIDE
     Route: 048
  46. BUDESONIDE [Suspect]
     Active Substance: BUDESONIDE
     Route: 065
  47. BUDESONIDE [Suspect]
     Active Substance: BUDESONIDE
     Route: 065
  48. BUDESONIDE [Suspect]
     Active Substance: BUDESONIDE
     Route: 065
  49. BUDESONIDE [Suspect]
     Active Substance: BUDESONIDE
     Route: 065
  50. BUDESONIDE [Suspect]
     Active Substance: BUDESONIDE
     Route: 048
  51. BUDESONIDE [Suspect]
     Active Substance: BUDESONIDE
     Dosage: NOT SPECIFIED
     Route: 048
  52. BUDESONIDE [Suspect]
     Active Substance: BUDESONIDE
     Dosage: NOT SPECIFIED
     Route: 048
  53. BUDESONIDE [Suspect]
     Active Substance: BUDESONIDE
     Dosage: NOT SPECIFIED, 3 ADMINISTRATIONS
     Route: 048
  54. BUDESONIDE [Suspect]
     Active Substance: BUDESONIDE
     Dosage: 4 ADMINISTRATIONS
     Route: 065
  55. BUDESONIDE [Suspect]
     Active Substance: BUDESONIDE
     Dosage: NOT SPECIFIED
     Route: 048
  56. BUDESONIDE [Suspect]
     Active Substance: BUDESONIDE
     Dosage: NOT SPECIFIED
     Route: 065
  57. BUDESONIDE [Suspect]
     Active Substance: BUDESONIDE
     Dosage: NOT SPECIFIED, 2 ADMINISTRATIONS
     Route: 048
  58. BUDESONIDE [Suspect]
     Active Substance: BUDESONIDE
     Dosage: NOT SPECIFIED
     Route: 065
  59. BUDESONIDE [Suspect]
     Active Substance: BUDESONIDE
     Dosage: NOT SPECIFIED
     Route: 065
  60. BUDESONIDE [Suspect]
     Active Substance: BUDESONIDE
     Route: 065
  61. BUDESONIDE [Suspect]
     Active Substance: BUDESONIDE
     Route: 065
  62. BUDESONIDE [Suspect]
     Active Substance: BUDESONIDE
     Dosage: 4 DOSAGE GIVEN
     Route: 048
  63. BUDESONIDE [Suspect]
     Active Substance: BUDESONIDE
     Route: 048
  64. BUDESONIDE [Suspect]
     Active Substance: BUDESONIDE
     Route: 065
  65. BUDESONIDE [Suspect]
     Active Substance: BUDESONIDE
     Dosage: NOT SPECIFIED
     Route: 065
  66. BUDESONIDE [Suspect]
     Active Substance: BUDESONIDE
     Dosage: 3 ADMINISTRATIONS
     Route: 048
  67. BUDESONIDE [Suspect]
     Active Substance: BUDESONIDE
     Dosage: 2 ADMINISTRATIONS
     Route: 048
  68. BUDESONIDE [Suspect]
     Active Substance: BUDESONIDE
     Route: 048
  69. BUDESONIDE [Suspect]
     Active Substance: BUDESONIDE
     Route: 065
  70. BUDESONIDE [Suspect]
     Active Substance: BUDESONIDE
     Route: 065
  71. BUDESONIDE [Suspect]
     Active Substance: BUDESONIDE
     Route: 048
  72. BUDESONIDE [Suspect]
     Active Substance: BUDESONIDE
     Route: 048
  73. BUDESONIDE [Suspect]
     Active Substance: BUDESONIDE
     Route: 048
  74. BUDESONIDE [Suspect]
     Active Substance: BUDESONIDE
     Route: 048
  75. BUDESONIDE [Suspect]
     Active Substance: BUDESONIDE
     Dosage: 19 ADMINISTRATIONS
     Route: 048
  76. BUDESONIDE [Suspect]
     Active Substance: BUDESONIDE
     Route: 065
  77. BUDESONIDE [Suspect]
     Active Substance: BUDESONIDE
     Route: 048
  78. BUDESONIDE [Suspect]
     Active Substance: BUDESONIDE
     Dosage: NOT SPECIFIED
     Route: 048
  79. BUDESONIDE [Suspect]
     Active Substance: BUDESONIDE
     Dosage: 2 ADMINISTRATIONS
     Route: 048
  80. BUDESONIDE [Suspect]
     Active Substance: BUDESONIDE
     Dosage: 2 ADMINISTRATIONS
     Route: 048
  81. BUDESONIDE [Suspect]
     Active Substance: BUDESONIDE
     Dosage: NOT SPECIFIED
     Route: 048
  82. BUDESONIDE [Suspect]
     Active Substance: BUDESONIDE
     Route: 048
  83. BUDESONIDE [Suspect]
     Active Substance: BUDESONIDE
     Route: 065
  84. BUDESONIDE [Suspect]
     Active Substance: BUDESONIDE
     Route: 048
  85. BUDESONIDE [Suspect]
     Active Substance: BUDESONIDE
     Dosage: TABLET (DELAYED AND EXTENDED RELEASE)
     Route: 048
  86. BUDESONIDE [Suspect]
     Active Substance: BUDESONIDE
     Dosage: TABLET (DELAYED AND EXTENDED RELEASE)
     Route: 065
  87. BUDESONIDE [Suspect]
     Active Substance: BUDESONIDE
     Dosage: TABLET (DELAYED AND EXTENDED RELEASE)
     Route: 048
  88. BUDESONIDE [Suspect]
     Active Substance: BUDESONIDE
     Dosage: TABLET (DELAYED AND EXTENDED RELEASE)
     Route: 065
  89. BUDESONIDE [Suspect]
     Active Substance: BUDESONIDE
     Dosage: TABLET (DELAYED AND EXTENDED RELEASE)
     Route: 048
  90. BUDESONIDE [Suspect]
     Active Substance: BUDESONIDE
     Dosage: TABLET (DELAYED AND EXTENDED RELEASE)
     Route: 048
  91. BUDESONIDE [Suspect]
     Active Substance: BUDESONIDE
     Dosage: TABLET (DELAYED AND EXTENDED RELEASE)?2ADMINISTRATIONS
     Route: 065
  92. BUDESONIDE [Suspect]
     Active Substance: BUDESONIDE
     Dosage: TABLET (DELAYED AND EXTENDED RELEASE)
     Route: 048
  93. BUDESONIDE [Suspect]
     Active Substance: BUDESONIDE
     Indication: Colitis ulcerative
     Dosage: 1 EVERY 8 WEEKS
     Route: 048
  94. BUDESONIDE [Suspect]
     Active Substance: BUDESONIDE
     Dosage: 1 EVERY 24 HOURS
     Route: 048
  95. BUDESONIDE [Suspect]
     Active Substance: BUDESONIDE
     Dosage: 4 DOSAGE TAKEN
     Route: 048
  96. BUDESONIDE [Suspect]
     Active Substance: BUDESONIDE
     Dosage: 4 DOSAGE TAKEN
     Route: 048
  97. BUDESONIDE [Suspect]
     Active Substance: BUDESONIDE
     Dosage: 2 DOSAGE TAKEN
     Route: 048
  98. BUDESONIDE [Suspect]
     Active Substance: BUDESONIDE
     Dosage: 5 DOSAGE TAKEN
     Route: 048
  99. BUDESONIDE [Suspect]
     Active Substance: BUDESONIDE
     Dosage: 3 DOSAGE TAKEN
     Route: 048
  100. BUDESONIDE [Suspect]
     Active Substance: BUDESONIDE
     Dosage: 1 EVERY 8 WEEKS, 3 DOSAGE TAKEN
     Route: 048
  101. BUDESONIDE [Suspect]
     Active Substance: BUDESONIDE
     Dosage: 1 EVERY 1 DAYS
     Route: 065
  102. BUDESONIDE [Suspect]
     Active Substance: BUDESONIDE
     Dosage: 1 EVERY 8 WEEKS
     Route: 065
  103. BUDESONIDE [Suspect]
     Active Substance: BUDESONIDE
     Dosage: 2 DOSAGE TAKEN
     Route: 048
  104. BUDESONIDE [Suspect]
     Active Substance: BUDESONIDE
     Route: 048
  105. BUDESONIDE [Suspect]
     Active Substance: BUDESONIDE
     Route: 065
  106. BUDESONIDE [Suspect]
     Active Substance: BUDESONIDE
     Dosage: 2 DOSAGE TAKEN
     Route: 065
  107. BUDESONIDE [Suspect]
     Active Substance: BUDESONIDE
     Dosage: 1 EVERY 8 WEEKS
     Route: 048
  108. BUDESONIDE [Suspect]
     Active Substance: BUDESONIDE
     Route: 048
  109. BUDESONIDE [Suspect]
     Active Substance: BUDESONIDE
     Route: 065
  110. BUDESONIDE [Suspect]
     Active Substance: BUDESONIDE
     Route: 048
  111. BUDESONIDE [Suspect]
     Active Substance: BUDESONIDE
     Route: 065
  112. BUDESONIDE [Suspect]
     Active Substance: BUDESONIDE
     Route: 065
  113. BUDESONIDE [Suspect]
     Active Substance: BUDESONIDE
     Route: 048
  114. BUDESONIDE [Suspect]
     Active Substance: BUDESONIDE
     Route: 065
  115. BUDESONIDE [Suspect]
     Active Substance: BUDESONIDE
     Route: 065
  116. BUDESONIDE [Suspect]
     Active Substance: BUDESONIDE
     Route: 048
  117. BUDESONIDE [Suspect]
     Active Substance: BUDESONIDE
     Route: 048
  118. BUDESONIDE [Suspect]
     Active Substance: BUDESONIDE
     Dosage: 3 ADMINISTRATIONS
     Route: 048
  119. BUDESONIDE [Suspect]
     Active Substance: BUDESONIDE
     Dosage: 5 ADMINISTRATIONS
     Route: 048
  120. BUDESONIDE [Suspect]
     Active Substance: BUDESONIDE
     Dosage: 4 ADMINISTRATIONS
     Route: 048
  121. BUDESONIDE [Suspect]
     Active Substance: BUDESONIDE
     Dosage: 3 ADMINISTRATIONS
     Route: 048
  122. BUDESONIDE [Suspect]
     Active Substance: BUDESONIDE
     Dosage: 4 ADMINISTRATIONS
     Route: 048
  123. BUDESONIDE [Suspect]
     Active Substance: BUDESONIDE
     Dosage: 4 ADMINISTRATIONS
     Route: 065
  124. BUDESONIDE [Suspect]
     Active Substance: BUDESONIDE
     Route: 048
  125. BUDESONIDE [Suspect]
     Active Substance: BUDESONIDE
     Route: 065
  126. BUDESONIDE [Suspect]
     Active Substance: BUDESONIDE
     Route: 048
  127. BUDESONIDE [Suspect]
     Active Substance: BUDESONIDE
     Route: 048
  128. BUDESONIDE [Suspect]
     Active Substance: BUDESONIDE
     Route: 065
  129. BUDESONIDE [Suspect]
     Active Substance: BUDESONIDE
     Route: 065
  130. BUDESONIDE [Suspect]
     Active Substance: BUDESONIDE
     Dosage: DOSAGE FORM: NOT SPECIFIED
     Route: 048
  131. BUDESONIDE [Suspect]
     Active Substance: BUDESONIDE
     Route: 065
  132. BUDESONIDE [Suspect]
     Active Substance: BUDESONIDE
     Dosage: 5 ADMINISTRATIONS
     Route: 065
  133. BUDESONIDE [Suspect]
     Active Substance: BUDESONIDE
     Dosage: 2ADMINISTRATIONS
     Route: 065
  134. BUDESONIDE [Suspect]
     Active Substance: BUDESONIDE
     Route: 065
  135. BUDESONIDE [Suspect]
     Active Substance: BUDESONIDE
     Route: 065
  136. MESALAMINE [Suspect]
     Active Substance: MESALAMINE
     Indication: Colitis ulcerative
     Route: 065
     Dates: start: 20170101, end: 20170901
  137. MESALAMINE [Suspect]
     Active Substance: MESALAMINE
     Route: 048
  138. MESALAMINE [Suspect]
     Active Substance: MESALAMINE
     Route: 065
  139. MESALAMINE [Suspect]
     Active Substance: MESALAMINE
     Route: 065
  140. MESALAMINE [Suspect]
     Active Substance: MESALAMINE
     Route: 065
  141. MESALAMINE [Suspect]
     Active Substance: MESALAMINE
     Route: 065
  142. MESALAMINE [Suspect]
     Active Substance: MESALAMINE
     Dosage: 3 ADMINISTRATIONS
     Route: 048
  143. MESALAMINE [Suspect]
     Active Substance: MESALAMINE
     Dosage: 3 ADMINISTRATIONS
     Route: 065
  144. MESALAMINE [Suspect]
     Active Substance: MESALAMINE
     Route: 065
  145. MESALAMINE [Suspect]
     Active Substance: MESALAMINE
     Route: 048
  146. MESALAMINE [Suspect]
     Active Substance: MESALAMINE
     Dosage: 3 ADMINISTRATIONS
     Route: 065
  147. MESALAMINE [Suspect]
     Active Substance: MESALAMINE
     Route: 065
  148. MESALAMINE [Suspect]
     Active Substance: MESALAMINE
     Dosage: 8 ADMINISTRATIONS
     Route: 065
  149. MESALAMINE [Suspect]
     Active Substance: MESALAMINE
     Dosage: 3 ADMINISTRATIONS
     Route: 065
  150. MESALAMINE [Suspect]
     Active Substance: MESALAMINE
     Dosage: THERAPY DURATION: 243.0, DOSAGE FORM: NOT SPECIFIED
     Route: 065
  151. MESALAMINE [Suspect]
     Active Substance: MESALAMINE
     Route: 065
  152. MESALAMINE [Suspect]
     Active Substance: MESALAMINE
     Route: 048
  153. MESALAMINE [Suspect]
     Active Substance: MESALAMINE
     Route: 065
  154. MESALAMINE [Suspect]
     Active Substance: MESALAMINE
     Dosage: NOT SPECIFIED
     Route: 065
  155. MESALAMINE [Suspect]
     Active Substance: MESALAMINE
     Dosage: DOSAGE FORM: NOT SPECIFIED, 5 ADMINISTRATIONS
     Route: 065
  156. MESALAMINE [Suspect]
     Active Substance: MESALAMINE
     Dosage: DOSAGE FORM: NOT SPECIFIED, 2 ADMINISTRATIONS
     Route: 065
  157. MESALAMINE [Suspect]
     Active Substance: MESALAMINE
     Dosage: DOSAGE FORM: NOT SPECIFIED, THERAPY DURATION: 274 DAYS
     Route: 065
  158. MESALAMINE [Suspect]
     Active Substance: MESALAMINE
     Dosage: DOSAGE FORM: NOT SPECIFIED
     Route: 065
  159. MESALAMINE [Suspect]
     Active Substance: MESALAMINE
     Dosage: DOSAGE FORM: NOT SPECIFIED, 3 ADMINISTRATIONS
     Route: 065
  160. MESALAMINE [Suspect]
     Active Substance: MESALAMINE
     Dosage: DOSAGE FORM: NOT SPECIFIED, 3 ADMINISTRATIONS
     Route: 065
  161. MESALAMINE [Suspect]
     Active Substance: MESALAMINE
     Dosage: DOSAGE FORM: NOT SPECIFIED
     Route: 065
  162. MESALAMINE [Suspect]
     Active Substance: MESALAMINE
     Dosage: DOSAGE FORM: NOT SPECIFIED
     Route: 065
  163. MESALAMINE [Suspect]
     Active Substance: MESALAMINE
     Dosage: DOSAGE FORM: NOT SPECIFIED
     Route: 048
  164. MESALAMINE [Suspect]
     Active Substance: MESALAMINE
     Dosage: DOSAGE FORM: NOT SPECIFIED, 2 ADMINISTRATIONS
     Route: 065
  165. MESALAMINE [Suspect]
     Active Substance: MESALAMINE
     Dosage: DOSAGE FORM: NOT SPECIFIED
     Route: 048
  166. MESALAMINE [Suspect]
     Active Substance: MESALAMINE
     Dosage: DOSAGE FORM: NOT SPECIFIED
     Route: 048
  167. MESALAMINE [Suspect]
     Active Substance: MESALAMINE
     Dosage: DOSAGE FORM: NOT SPECIFIED
     Route: 048
  168. MESALAMINE [Suspect]
     Active Substance: MESALAMINE
     Dosage: DOSAGE FORM: NOT SPECIFIED
     Route: 048
  169. MESALAMINE [Suspect]
     Active Substance: MESALAMINE
     Dosage: DOSAGE FROM: NOT SPECIFIED
     Route: 065
  170. MESALAMINE [Suspect]
     Active Substance: MESALAMINE
     Dosage: DOSAGE FORM: NOT SPECIFIED, 2 ADMINISTRATIONS
     Route: 065
  171. MESALAMINE [Suspect]
     Active Substance: MESALAMINE
     Dosage: DOSAGE FORM: NOT SPECIFIED
     Route: 065
  172. MESALAMINE [Suspect]
     Active Substance: MESALAMINE
     Dosage: DOSAGE FORM: NOT SPECIFIED, 2 ADMINISTRATIONS
     Route: 065
  173. MESALAMINE [Suspect]
     Active Substance: MESALAMINE
     Dosage: DOSAGE FORM: NOT SPECIFIED
     Route: 065
  174. MESALAMINE [Suspect]
     Active Substance: MESALAMINE
     Dosage: DOSAGE FORM: NOT SPECIFIED
     Route: 065
  175. MESALAMINE [Suspect]
     Active Substance: MESALAMINE
     Dosage: DOSAGE FORM: NOT SPECIFIED
     Route: 065
  176. MESALAMINE [Suspect]
     Active Substance: MESALAMINE
     Dosage: DOSAGE FORM: NOT SPECIFIED
     Route: 065
  177. MESALAMINE [Suspect]
     Active Substance: MESALAMINE
     Dosage: DOSAGE FORM: NOT SPECIFIED
     Route: 065
  178. MESALAMINE [Suspect]
     Active Substance: MESALAMINE
     Dosage: DOSAGE FORM: NOT SPECIFIED
     Route: 065
  179. MESALAMINE [Suspect]
     Active Substance: MESALAMINE
     Dosage: DOSAGE FORM: NOT SPECIFIED
     Route: 065
  180. MESALAMINE [Suspect]
     Active Substance: MESALAMINE
     Dosage: DOSAGE FORM: NOT SPECIFIED, 2 ADMINISTRATIONS
     Route: 065
  181. MESALAMINE [Suspect]
     Active Substance: MESALAMINE
     Dosage: DOSAGE FORM: NOT SPECIFIED
     Route: 065
  182. MESALAMINE [Suspect]
     Active Substance: MESALAMINE
     Dosage: DOSAGE FORM: NOT SPECIFIED
     Route: 065
  183. MESALAMINE [Suspect]
     Active Substance: MESALAMINE
     Dosage: DOSAGE FORM: NOT SPECIFIED
     Route: 048
  184. MESALAMINE [Suspect]
     Active Substance: MESALAMINE
     Dosage: DOSAGE FORM: NOT SPECIFIED
     Route: 065
  185. MESALAMINE [Suspect]
     Active Substance: MESALAMINE
     Dosage: DOSAGE FORM: NOT SPECIFIED
     Route: 065
  186. MESALAMINE [Suspect]
     Active Substance: MESALAMINE
     Dosage: DOSAGE FORM: NOT SPECIFIED
     Route: 065
  187. MESALAMINE [Suspect]
     Active Substance: MESALAMINE
     Dosage: DOSAGE FORM: NOT SPECIFIED
     Route: 065
  188. MESALAMINE [Suspect]
     Active Substance: MESALAMINE
     Dosage: DOSAGE FORM: NOT SPECIFIED
     Route: 048
  189. MESALAMINE [Suspect]
     Active Substance: MESALAMINE
     Dosage: DOSAGE FORM: NOT SPECIFIED
     Route: 065
  190. MESALAMINE [Suspect]
     Active Substance: MESALAMINE
     Dosage: DOSAGE FORM: NOT SPECIFIED
     Route: 048
  191. MESALAMINE [Suspect]
     Active Substance: MESALAMINE
     Dosage: 3 ADMINISTRATIONS
     Route: 065
  192. MESALAMINE [Suspect]
     Active Substance: MESALAMINE
     Route: 048
  193. MESALAMINE [Suspect]
     Active Substance: MESALAMINE
     Route: 065
  194. MESALAMINE [Suspect]
     Active Substance: MESALAMINE
     Dosage: 2 ADMINISTRATIONS
     Route: 048
  195. MESALAMINE [Suspect]
     Active Substance: MESALAMINE
     Route: 065
  196. MESALAMINE [Suspect]
     Active Substance: MESALAMINE
     Route: 065
  197. MESALAMINE [Suspect]
     Active Substance: MESALAMINE
     Route: 048
  198. MESALAMINE [Suspect]
     Active Substance: MESALAMINE
     Route: 065
  199. MESALAMINE [Suspect]
     Active Substance: MESALAMINE
     Route: 065
  200. MESALAMINE [Suspect]
     Active Substance: MESALAMINE
     Dosage: 2 ADMINISTRATIONS
     Route: 048
  201. MESALAMINE [Suspect]
     Active Substance: MESALAMINE
     Route: 048
  202. MESALAMINE [Suspect]
     Active Substance: MESALAMINE
     Route: 048
  203. MESALAMINE [Suspect]
     Active Substance: MESALAMINE
     Route: 065
  204. MESALAMINE [Suspect]
     Active Substance: MESALAMINE
     Route: 065
  205. MESALAMINE [Suspect]
     Active Substance: MESALAMINE
     Route: 065
  206. MESALAMINE [Suspect]
     Active Substance: MESALAMINE
     Route: 048
  207. MESALAMINE [Suspect]
     Active Substance: MESALAMINE
     Route: 048
  208. MESALAMINE [Suspect]
     Active Substance: MESALAMINE
     Route: 065
  209. MESALAMINE [Suspect]
     Active Substance: MESALAMINE
     Dosage: 31 ADMINISTRATIONS
     Route: 065
  210. MESALAMINE [Suspect]
     Active Substance: MESALAMINE
     Route: 065
  211. MESALAMINE [Suspect]
     Active Substance: MESALAMINE
     Route: 065
  212. HYDROCORTISONE [Suspect]
     Active Substance: HYDROCORTISONE
     Indication: Colitis ulcerative
     Route: 042
  213. HYDROCORTISONE [Suspect]
     Active Substance: HYDROCORTISONE
     Indication: Crohn^s disease
     Route: 048
  214. HYDROCORTISONE [Suspect]
     Active Substance: HYDROCORTISONE
     Route: 048
  215. HYDROCORTISONE [Suspect]
     Active Substance: HYDROCORTISONE
     Route: 048
  216. HYDROCORTISONE [Suspect]
     Active Substance: HYDROCORTISONE
     Dosage: FREQUENCY- 2 EVERY 1 DAYS
     Route: 048
  217. HYDROCORTISONE [Suspect]
     Active Substance: HYDROCORTISONE
     Route: 048
  218. HYDROCORTISONE [Suspect]
     Active Substance: HYDROCORTISONE
     Route: 065
  219. HYDROCORTISONE [Suspect]
     Active Substance: HYDROCORTISONE
     Route: 065
  220. HYDROCORTISONE [Suspect]
     Active Substance: HYDROCORTISONE
     Route: 048
  221. HYDROCORTISONE [Suspect]
     Active Substance: HYDROCORTISONE
     Route: 065
  222. HYDROCORTISONE [Suspect]
     Active Substance: HYDROCORTISONE
     Route: 065
  223. HYDROCORTISONE [Suspect]
     Active Substance: HYDROCORTISONE
     Route: 065
  224. HYDROCORTISONE [Suspect]
     Active Substance: HYDROCORTISONE
     Route: 048
  225. HYDROCORTISONE [Suspect]
     Active Substance: HYDROCORTISONE
     Route: 065
  226. HYDROCORTISONE [Suspect]
     Active Substance: HYDROCORTISONE
     Dosage: DOSAGE FORM: NOT SPECIFIED
     Route: 065
  227. HYDROCORTISONE [Suspect]
     Active Substance: HYDROCORTISONE
     Dosage: DOSAGE FORM: NOT SPECIFIED
     Route: 048
  228. HYDROCORTISONE [Suspect]
     Active Substance: HYDROCORTISONE
     Dosage: DOSAGE FORM: NOT SPECIFIED
     Route: 048
  229. HYDROCORTISONE [Suspect]
     Active Substance: HYDROCORTISONE
     Dosage: DOSAGE FORM: NOT SPECIFIED
     Route: 048
  230. HYDROCORTISONE [Suspect]
     Active Substance: HYDROCORTISONE
     Dosage: DOSAGE FORM: NOT SPECIFIED
     Route: 065
  231. HYDROCORTISONE [Suspect]
     Active Substance: HYDROCORTISONE
     Dosage: DOSAGE FORM: NOT SPECIFIED
     Route: 065
  232. HYDROCORTISONE [Suspect]
     Active Substance: HYDROCORTISONE
     Dosage: DOSAGE FORM: NOT SPECIFIED
     Route: 048
  233. HYDROCORTISONE [Suspect]
     Active Substance: HYDROCORTISONE
     Dosage: DOSAGE FORM: NOT SPECIFIED
     Route: 048
  234. HYDROCORTISONE [Suspect]
     Active Substance: HYDROCORTISONE
     Dosage: DOSAGE FORM: NOT SPECIFIED
     Route: 065
  235. HYDROCORTISONE [Suspect]
     Active Substance: HYDROCORTISONE
     Dosage: DOSAGE FORM: NOT SPECIFIED
     Route: 048
  236. HYDROCORTISONE [Suspect]
     Active Substance: HYDROCORTISONE
     Route: 048
  237. HYDROCORTISONE [Suspect]
     Active Substance: HYDROCORTISONE
     Route: 065
  238. HYDROCORTISONE [Suspect]
     Active Substance: HYDROCORTISONE
     Dosage: THERAPY DURATION: 1 DAY
     Route: 065
  239. HYDROCORTISONE [Suspect]
     Active Substance: HYDROCORTISONE
     Dosage: THERAPY DURATION: 1 DAY
     Route: 048
  240. HYDROCORTISONE [Suspect]
     Active Substance: HYDROCORTISONE
     Dosage: THERAPY DURATION: 1 DAY
     Route: 048
  241. HYDROCORTISONE [Suspect]
     Active Substance: HYDROCORTISONE
     Dosage: THERAPY DURATION: 1 DAY
     Route: 048
  242. HYDROCORTISONE [Suspect]
     Active Substance: HYDROCORTISONE
     Dosage: THERAPY DURATION: 1 DAY
     Route: 065
  243. HYDROCORTISONE [Suspect]
     Active Substance: HYDROCORTISONE
     Dosage: THERAPY DURATION: 1 DAY
     Route: 065
  244. HYDROCORTISONE [Suspect]
     Active Substance: HYDROCORTISONE
     Dosage: THERAPY DURATION: 1 DAY
     Route: 065
  245. HYDROCORTISONE [Suspect]
     Active Substance: HYDROCORTISONE
     Dosage: THERAPY DURATION: 1 DAY
     Route: 065
  246. HYDROCORTISONE [Suspect]
     Active Substance: HYDROCORTISONE
     Dosage: THERAPY DURATION: 1 DAY
     Route: 048
  247. HYDROCORTISONE [Suspect]
     Active Substance: HYDROCORTISONE
     Dosage: THERAPY DURATION: 1 DAY
     Route: 048
  248. HYDROCORTISONE [Suspect]
     Active Substance: HYDROCORTISONE
     Dosage: THERAPY DURATION: 1 DAY
     Route: 048
  249. HYDROCORTISONE [Suspect]
     Active Substance: HYDROCORTISONE
     Dosage: THERAPY DURATION: 1 DAY, DOSAGE FORM: NOT SPECIFIED
     Route: 048
  250. HYDROCORTISONE [Suspect]
     Active Substance: HYDROCORTISONE
     Dosage: THERAPY DURATION: 1 DAY
     Route: 065
  251. HYDROCORTISONE [Suspect]
     Active Substance: HYDROCORTISONE
     Dosage: 3 ADMINISTRATIONS
     Route: 048
  252. HYDROCORTISONE [Suspect]
     Active Substance: HYDROCORTISONE
     Route: 065
  253. HYDROCORTISONE [Suspect]
     Active Substance: HYDROCORTISONE
     Route: 065
  254. HYDROCORTISONE [Suspect]
     Active Substance: HYDROCORTISONE
     Route: 048
  255. HYDROCORTISONE [Suspect]
     Active Substance: HYDROCORTISONE
     Dosage: 2 ADMINISTRATIONS
     Route: 048
  256. HYDROCORTISONE [Suspect]
     Active Substance: HYDROCORTISONE
     Dosage: 4 EVERY 1 DAY
     Route: 048
  257. HYDROCORTISONE [Suspect]
     Active Substance: HYDROCORTISONE
     Dosage: 2 EVERY 1 DAY
     Route: 065
  258. HYDROCORTISONE [Suspect]
     Active Substance: HYDROCORTISONE
     Indication: Colitis ulcerative
     Dosage: UNK, QD
     Route: 065
     Dates: start: 201807
  259. HYDROCORTISONE [Suspect]
     Active Substance: HYDROCORTISONE
     Indication: Crohn^s disease
     Dosage: 1 DOSAGE FORM, 1X/DAY QD
     Route: 048
  260. HYDROCORTISONE [Suspect]
     Active Substance: HYDROCORTISONE
     Dosage: 8 DOSAGE FORM, Q8 WEEK
     Route: 065
     Dates: start: 201707
  261. HYDROCORTISONE [Suspect]
     Active Substance: HYDROCORTISONE
     Route: 065
  262. HYDROCORTISONE [Suspect]
     Active Substance: HYDROCORTISONE
     Route: 048
  263. HYDROCORTISONE [Suspect]
     Active Substance: HYDROCORTISONE
     Route: 048
  264. HYDROCORTISONE [Suspect]
     Active Substance: HYDROCORTISONE
     Route: 048
  265. HYDROCORTISONE [Suspect]
     Active Substance: HYDROCORTISONE
     Route: 048
  266. HYDROCORTISONE [Suspect]
     Active Substance: HYDROCORTISONE
     Route: 048
  267. HYDROCORTISONE [Suspect]
     Active Substance: HYDROCORTISONE
     Route: 065
  268. HYDROCORTISONE [Suspect]
     Active Substance: HYDROCORTISONE
     Route: 065
  269. HYDROCORTISONE [Suspect]
     Active Substance: HYDROCORTISONE
     Route: 065
  270. HYDROCORTISONE ACETATE [Suspect]
     Active Substance: HYDROCORTISONE ACETATE
     Indication: Crohn^s disease
     Route: 065
  271. HYDROCORTISONE ACETATE [Suspect]
     Active Substance: HYDROCORTISONE ACETATE
     Indication: Colitis ulcerative
     Route: 048
  272. HYDROCORTISONE ACETATE [Suspect]
     Active Substance: HYDROCORTISONE ACETATE
     Indication: Deep vein thrombosis
     Route: 048
  273. HYDROCORTISONE ACETATE [Suspect]
     Active Substance: HYDROCORTISONE ACETATE
     Route: 048
  274. HYDROCORTISONE ACETATE [Suspect]
     Active Substance: HYDROCORTISONE ACETATE
     Route: 065
  275. HYDROCORTISONE ACETATE [Suspect]
     Active Substance: HYDROCORTISONE ACETATE
     Route: 048
  276. HYDROCORTISONE ACETATE [Suspect]
     Active Substance: HYDROCORTISONE ACETATE
     Route: 065
  277. HYDROCORTISONE ACETATE [Suspect]
     Active Substance: HYDROCORTISONE ACETATE
     Route: 065
  278. HYDROCORTISONE ACETATE [Suspect]
     Active Substance: HYDROCORTISONE ACETATE
     Route: 048
  279. HYDROCORTISONE ACETATE [Suspect]
     Active Substance: HYDROCORTISONE ACETATE
     Route: 065
  280. HYDROCORTISONE ACETATE [Suspect]
     Active Substance: HYDROCORTISONE ACETATE
     Route: 048
  281. HYDROCORTISONE ACETATE [Suspect]
     Active Substance: HYDROCORTISONE ACETATE
     Route: 048
  282. HYDROCORTISONE ACETATE [Suspect]
     Active Substance: HYDROCORTISONE ACETATE
     Dosage: THERAPY DURATION: 11 YEARS
     Route: 065
  283. HYDROCORTISONE ACETATE [Suspect]
     Active Substance: HYDROCORTISONE ACETATE
     Route: 065
  284. HYDROCORTISONE ACETATE [Suspect]
     Active Substance: HYDROCORTISONE ACETATE
     Route: 048
  285. HYDROCORTISONE ACETATE [Suspect]
     Active Substance: HYDROCORTISONE ACETATE
     Indication: Crohn^s disease
     Route: 065
  286. HYDROCORTISONE ACETATE [Suspect]
     Active Substance: HYDROCORTISONE ACETATE
     Indication: Colitis ulcerative
     Route: 065
  287. HYDROCORTISONE ACETATE [Suspect]
     Active Substance: HYDROCORTISONE ACETATE
     Indication: Deep vein thrombosis
     Route: 065
  288. EPINEPHRINE [Suspect]
     Active Substance: EPINEPHRINE
     Indication: Product used for unknown indication
     Route: 065
  289. EPINEPHRINE [Suspect]
     Active Substance: EPINEPHRINE
     Dosage: EPINEPHRINE HYDROCHLORIDE, 2 ADMINISTRATIONS
     Route: 065
  290. EPINEPHRINE [Suspect]
     Active Substance: EPINEPHRINE
     Dosage: NOT SPECIFIED
     Route: 065
  291. DESOXIMETASONE [Suspect]
     Active Substance: DESOXIMETASONE
     Indication: Crohn^s disease
     Dosage: DAILY
     Route: 048
  292. DESOXIMETASONE [Suspect]
     Active Substance: DESOXIMETASONE
     Indication: Colitis ulcerative
     Route: 048
  293. DESOXIMETASONE [Suspect]
     Active Substance: DESOXIMETASONE
     Dosage: ONCE
     Route: 048
  294. DESOXIMETASONE [Suspect]
     Active Substance: DESOXIMETASONE
     Route: 048
  295. DESOXIMETASONE [Suspect]
     Active Substance: DESOXIMETASONE
     Dosage: NOT SPECIFIED
     Route: 065
  296. DESOXIMETASONE [Suspect]
     Active Substance: DESOXIMETASONE
     Dosage: NOT SPECIFIED
     Route: 065
  297. DESOXIMETASONE [Suspect]
     Active Substance: DESOXIMETASONE
     Dosage: NOT SPECIFIED
     Route: 065
  298. DESOXIMETASONE [Suspect]
     Active Substance: DESOXIMETASONE
     Dosage: NOT SPECIFIED
     Route: 065
  299. DESOXIMETASONE [Suspect]
     Active Substance: DESOXIMETASONE
     Dosage: NOT SPECIFIED
     Route: 065
  300. DESOXIMETASONE [Suspect]
     Active Substance: DESOXIMETASONE
     Dosage: NOT SPECIFIED
     Route: 048
  301. DESOXIMETASONE [Suspect]
     Active Substance: DESOXIMETASONE
     Route: 065
  302. DESOXIMETASONE [Suspect]
     Active Substance: DESOXIMETASONE
     Route: 048
  303. DESOXIMETASONE [Suspect]
     Active Substance: DESOXIMETASONE
     Dosage: 2 ADMINISTRATIONS
     Route: 048
  304. DESOXIMETASONE [Suspect]
     Active Substance: DESOXIMETASONE
     Route: 065
  305. DESOXIMETASONE [Suspect]
     Active Substance: DESOXIMETASONE
     Route: 065
  306. DESOXIMETASONE [Suspect]
     Active Substance: DESOXIMETASONE
     Route: 065
  307. DESOXIMETASONE [Suspect]
     Active Substance: DESOXIMETASONE
     Dosage: 2 ADMINISTRATIONS
     Route: 048
  308. DESOXIMETASONE [Suspect]
     Active Substance: DESOXIMETASONE
     Route: 048
  309. DESOXIMETASONE [Suspect]
     Active Substance: DESOXIMETASONE
     Route: 048
  310. DESOXIMETASONE [Suspect]
     Active Substance: DESOXIMETASONE
     Dosage: NOT SPECIFIED
     Route: 065
  311. DESOXIMETASONE [Suspect]
     Active Substance: DESOXIMETASONE
     Route: 065
  312. DESOXIMETASONE [Suspect]
     Active Substance: DESOXIMETASONE
     Route: 048
  313. DESOXIMETASONE [Suspect]
     Active Substance: DESOXIMETASONE
     Route: 048
  314. DESOXIMETASONE [Suspect]
     Active Substance: DESOXIMETASONE
     Route: 048
  315. CORTISONE [Suspect]
     Active Substance: CORTISONE
     Indication: Crohn^s disease
     Dosage: 5 ADMINISTRATION
     Route: 048
  316. CORTISONE [Suspect]
     Active Substance: CORTISONE
     Indication: Colitis ulcerative
     Dosage: 2 ADMINISTRATION
     Route: 048
  317. CORTISONE [Suspect]
     Active Substance: CORTISONE
     Dosage: 2 ADMINISTRATION
     Route: 048
  318. CORTISONE [Suspect]
     Active Substance: CORTISONE
     Route: 048
  319. CORTISONE [Suspect]
     Active Substance: CORTISONE
     Route: 065
  320. CORTISONE [Suspect]
     Active Substance: CORTISONE
     Route: 048
  321. CORTISONE [Suspect]
     Active Substance: CORTISONE
     Route: 048
  322. CORTISONE [Suspect]
     Active Substance: CORTISONE
     Dosage: 5 ADMINISTRATION
     Route: 065
  323. CORTISONE [Suspect]
     Active Substance: CORTISONE
     Dosage: 2 ADMINISTRATIONS
     Route: 065
  324. CORTISONE [Suspect]
     Active Substance: CORTISONE
     Route: 065
  325. CORTISONE [Suspect]
     Active Substance: CORTISONE
     Indication: Crohn^s disease
     Dosage: DOSAGE FORM: NOT SPECIFIED
     Route: 048
  326. CORTISONE [Suspect]
     Active Substance: CORTISONE
     Indication: Colitis ulcerative
     Dosage: DOSAGE FORM: NOT SPECIFIED
     Route: 048
  327. CORTISONE [Suspect]
     Active Substance: CORTISONE
     Route: 048
  328. CORTISONE [Suspect]
     Active Substance: CORTISONE
     Route: 042
  329. ACETAMINOPHEN [Suspect]
     Active Substance: ACETAMINOPHEN
     Indication: Ill-defined disorder
     Dosage: NOT SPECIFIED, 1 EVERY .25 DAYS
     Route: 065
  330. ACETAMINOPHEN [Suspect]
     Active Substance: ACETAMINOPHEN
     Route: 065
  331. ACETAMINOPHEN [Suspect]
     Active Substance: ACETAMINOPHEN
     Route: 065
  332. ACETAMINOPHEN [Suspect]
     Active Substance: ACETAMINOPHEN
     Route: 065
  333. ACETAMINOPHEN [Suspect]
     Active Substance: ACETAMINOPHEN
     Route: 065
  334. ACETAMINOPHEN [Suspect]
     Active Substance: ACETAMINOPHEN
     Dosage: DOSAGE FORM: NOT SPECIFIED
     Route: 065
  335. ACETAMINOPHEN [Suspect]
     Active Substance: ACETAMINOPHEN
     Dosage: 4 TIMES DAILY
     Route: 065
  336. ACETAMINOPHEN [Suspect]
     Active Substance: ACETAMINOPHEN
     Route: 065
  337. ADALIMUMAB [Suspect]
     Active Substance: ADALIMUMAB
     Indication: Deep vein thrombosis
     Dosage: SOLUTION SUBCUTANEOUS
     Route: 065
  338. ADALIMUMAB [Suspect]
     Active Substance: ADALIMUMAB
     Indication: Crohn^s disease
     Dosage: 2 DOSAGE TAKEN
     Route: 065
  339. ADALIMUMAB [Suspect]
     Active Substance: ADALIMUMAB
     Indication: Colitis ulcerative
     Route: 065
  340. ADALIMUMAB [Suspect]
     Active Substance: ADALIMUMAB
     Route: 065
  341. ADALIMUMAB [Suspect]
     Active Substance: ADALIMUMAB
     Route: 065
     Dates: start: 20171019
  342. ADALIMUMAB [Suspect]
     Active Substance: ADALIMUMAB
     Route: 048
  343. ADALIMUMAB [Suspect]
     Active Substance: ADALIMUMAB
     Route: 048
  344. ADALIMUMAB [Suspect]
     Active Substance: ADALIMUMAB
     Route: 058
  345. ADALIMUMAB [Suspect]
     Active Substance: ADALIMUMAB
     Route: 065
  346. ADALIMUMAB [Suspect]
     Active Substance: ADALIMUMAB
     Dosage: SOLUTION SUBCUTANEOUS
     Route: 058
  347. ADALIMUMAB [Suspect]
     Active Substance: ADALIMUMAB
     Route: 065
  348. ADALIMUMAB [Suspect]
     Active Substance: ADALIMUMAB
     Route: 065
  349. ADALIMUMAB [Suspect]
     Active Substance: ADALIMUMAB
     Route: 058
  350. ADALIMUMAB [Suspect]
     Active Substance: ADALIMUMAB
     Route: 048
  351. ADALIMUMAB [Suspect]
     Active Substance: ADALIMUMAB
     Route: 058
  352. ADALIMUMAB [Suspect]
     Active Substance: ADALIMUMAB
     Route: 065
  353. ADALIMUMAB [Suspect]
     Active Substance: ADALIMUMAB
     Route: 048
  354. ADALIMUMAB [Suspect]
     Active Substance: ADALIMUMAB
     Route: 058
  355. ADALIMUMAB [Suspect]
     Active Substance: ADALIMUMAB
     Route: 058
  356. ADALIMUMAB [Suspect]
     Active Substance: ADALIMUMAB
     Dosage: 2 ADMINISTRATIONS
     Route: 058
  357. ALBENDAZOLE [Suspect]
     Active Substance: ALBENDAZOLE
     Indication: Deep vein thrombosis
     Dosage: 14 ADMINISTRATIONS
     Route: 042
  358. ALBENDAZOLE [Suspect]
     Active Substance: ALBENDAZOLE
     Indication: Colitis ulcerative
     Route: 048
  359. ALBENDAZOLE [Suspect]
     Active Substance: ALBENDAZOLE
     Route: 048
  360. ALBENDAZOLE [Suspect]
     Active Substance: ALBENDAZOLE
     Dates: start: 2017, end: 2017
  361. ASACOL [Suspect]
     Active Substance: MESALAMINE
     Indication: Colitis ulcerative
     Route: 065
  362. ASACOL [Suspect]
     Active Substance: MESALAMINE
     Route: 065
  363. ASACOL [Suspect]
     Active Substance: MESALAMINE
     Route: 065
  364. ASACOL [Suspect]
     Active Substance: MESALAMINE
     Dosage: 2 DOSAGE TAKEN
     Route: 065
  365. ASACOL [Suspect]
     Active Substance: MESALAMINE
     Route: 065
  366. ASACOL [Suspect]
     Active Substance: MESALAMINE
     Route: 065
  367. ASACOL [Suspect]
     Active Substance: MESALAMINE
     Dosage: ENTERIC TABLET, 800 MG
     Route: 065
  368. ASACOL [Suspect]
     Active Substance: MESALAMINE
     Route: 065
  369. ASACOL [Suspect]
     Active Substance: MESALAMINE
     Dosage: ENTERIC TABLET, 800 MG
     Route: 048
  370. ASACOL [Suspect]
     Active Substance: MESALAMINE
     Route: 065
  371. ASACOL [Suspect]
     Active Substance: MESALAMINE
     Route: 065
  372. ASACOL [Suspect]
     Active Substance: MESALAMINE
     Dosage: ENTERIC TABLET, 800 MG
     Route: 065
  373. ASACOL [Suspect]
     Active Substance: MESALAMINE
     Dosage: ENTERIC TABLET, 800 MG
     Route: 065
     Dates: start: 20161001
  374. ASACOL [Suspect]
     Active Substance: MESALAMINE
     Dosage: ENTERIC TABLET, 800 MG
     Route: 065
     Dates: start: 20161001
  375. ASACOL [Suspect]
     Active Substance: MESALAMINE
     Dosage: ENTERIC TABLET, 800 MG
     Route: 065
  376. ASACOL [Suspect]
     Active Substance: MESALAMINE
     Dosage: ENTERIC TABLET, 800 MG
     Route: 065
     Dates: start: 20161001
  377. ASACOL [Suspect]
     Active Substance: MESALAMINE
     Dosage: ENTERIC TABLET, 800 MG
     Route: 065
  378. ASACOL [Suspect]
     Active Substance: MESALAMINE
     Dosage: ENTERIC TABLET, 800 MG?0.8 G, 3 TABLETS TWO TIMES A DAY (4.8 G DAILY)
     Route: 065
     Dates: start: 201610
  379. ASACOL [Suspect]
     Active Substance: MESALAMINE
     Dosage: ENTERIC TABLET, 800 MG?0.8 G, 3 TABLETS TWO TIMES A DAY (4.8 G DAILY)
     Route: 065
     Dates: start: 20161001
  380. ASACOL [Suspect]
     Active Substance: MESALAMINE
     Route: 065
  381. ASACOL [Suspect]
     Active Substance: MESALAMINE
     Route: 065
  382. ASACOL [Suspect]
     Active Substance: MESALAMINE
     Route: 065
  383. ASACOL [Suspect]
     Active Substance: MESALAMINE
     Route: 048
  384. ASACOL [Suspect]
     Active Substance: MESALAMINE
     Dosage: 2ADMINISTRATIONS
     Route: 065
  385. ASACOL [Suspect]
     Active Substance: MESALAMINE
     Dosage: 2 ADMINISTRATIONS
     Route: 065
  386. ASACOL [Suspect]
     Active Substance: MESALAMINE
     Route: 065
  387. ASACOL [Suspect]
     Active Substance: MESALAMINE
     Route: 065
  388. ASACOL [Suspect]
     Active Substance: MESALAMINE
     Route: 048
  389. ASACOL [Suspect]
     Active Substance: MESALAMINE
     Route: 065
  390. ASACOL [Suspect]
     Active Substance: MESALAMINE
     Route: 065
  391. ASACOL [Suspect]
     Active Substance: MESALAMINE
     Dosage: 2 ADMINISTRATIONS
     Route: 065
  392. ASACOL [Suspect]
     Active Substance: MESALAMINE
     Route: 065
  393. ASACOL [Suspect]
     Active Substance: MESALAMINE
     Route: 065
  394. ASACOL [Suspect]
     Active Substance: MESALAMINE
     Route: 065
  395. ASACOL [Suspect]
     Active Substance: MESALAMINE
     Route: 065
  396. ASACOL [Suspect]
     Active Substance: MESALAMINE
     Route: 065
  397. ASACOL [Suspect]
     Active Substance: MESALAMINE
     Dosage: 2 ADMINISTRATIONS
     Route: 065
  398. ASACOL [Suspect]
     Active Substance: MESALAMINE
     Dosage: 2 ADMINISTRATIONS
     Route: 048
  399. ASPIRIN [Suspect]
     Active Substance: ASPIRIN
     Indication: Ill-defined disorder
     Dosage: 4 DOSAGE TAKEN
     Route: 065
  400. ASPIRIN [Suspect]
     Active Substance: ASPIRIN
     Indication: Crohn^s disease
     Route: 065
  401. CANDESARTAN [Suspect]
     Active Substance: CANDESARTAN
     Indication: Colitis ulcerative
     Route: 048
  402. CANDESARTAN [Suspect]
     Active Substance: CANDESARTAN
     Route: 065
  403. CANDESARTAN [Suspect]
     Active Substance: CANDESARTAN
     Dosage: CANDESARTAN?CILEXETIL
     Route: 048
  404. CANDESARTAN [Suspect]
     Active Substance: CANDESARTAN
     Route: 048
  405. AZD-1222 [Suspect]
     Active Substance: AZD-1222
     Indication: COVID-19 immunisation
     Route: 065
  406. AZD-1222 [Suspect]
     Active Substance: AZD-1222
     Indication: Adverse drug reaction
     Dosage: 16 DOSAGE TAKEN
     Route: 065
  407. AZD-1222 [Suspect]
     Active Substance: AZD-1222
     Route: 065
  408. AZD-1222 [Suspect]
     Active Substance: AZD-1222
     Dosage: 2 ADMINISTRATIONS
     Route: 065
  409. AZD-1222 [Suspect]
     Active Substance: AZD-1222
     Route: 065
  410. CHOLECALCIFEROL [Suspect]
     Active Substance: CHOLECALCIFEROL
     Indication: Product used for unknown indication
     Route: 065
  411. CITALOPRAM HYDROBROMIDE [Suspect]
     Active Substance: CITALOPRAM HYDROBROMIDE
     Indication: Ill-defined disorder
     Dosage: 3 DOSAGE TAKEN
     Route: 065
  412. COMIRNATY (TOZINAMERAN) [Suspect]
     Active Substance: TOZINAMERAN
     Indication: Product used for unknown indication
     Dosage: 2 DOSAGE TAKEN
     Route: 065
  413. COMIRNATY (TOZINAMERAN) [Suspect]
     Active Substance: TOZINAMERAN
     Route: 065
  414. CORTIFOAM [Suspect]
     Active Substance: HYDROCORTISONE ACETATE
     Indication: Colitis ulcerative
     Dosage: 2 DOSAGE TAKEN
     Route: 065
  415. CORTIFOAM [Suspect]
     Active Substance: HYDROCORTISONE ACETATE
     Indication: Deep vein thrombosis
     Dosage: 1 EVERY 1 DAYS
     Route: 065
  416. CORTIFOAM [Suspect]
     Active Substance: HYDROCORTISONE ACETATE
     Dosage: 1 EVERY 8 WEEKS
     Route: 065
  417. CORTIFOAM [Suspect]
     Active Substance: HYDROCORTISONE ACETATE
     Dosage: 1 EVERY 1 DAYS
     Route: 065
  418. CORTIFOAM [Suspect]
     Active Substance: HYDROCORTISONE ACETATE
     Dosage: 1 EVERY 8 WEEKS, AEROSOL, FOAM
     Route: 065
  419. CORTIFOAM [Suspect]
     Active Substance: HYDROCORTISONE ACETATE
     Dosage: 1 EVERY 8 WEEKS
     Route: 065
  420. CORTIFOAM [Suspect]
     Active Substance: HYDROCORTISONE ACETATE
     Route: 048
  421. CORTIFOAM [Suspect]
     Active Substance: HYDROCORTISONE ACETATE
     Route: 065
  422. CORTIFOAM [Suspect]
     Active Substance: HYDROCORTISONE ACETATE
     Route: 048
  423. CORTIFOAM [Suspect]
     Active Substance: HYDROCORTISONE ACETATE
     Dosage: AEROSOL, FOAM  4ADMINISTRATIONS
     Route: 065
  424. CORTIFOAM [Suspect]
     Active Substance: HYDROCORTISONE ACETATE
     Dosage: AEROSOL, FOAM
     Route: 048
  425. CORTIFOAM [Suspect]
     Active Substance: HYDROCORTISONE ACETATE
     Dosage: AEROSOL, FOAM
     Route: 048
  426. CORTIFOAM [Suspect]
     Active Substance: HYDROCORTISONE ACETATE
     Route: 048
  427. CORTIFOAM [Suspect]
     Active Substance: HYDROCORTISONE ACETATE
     Route: 048
  428. CORTIFOAM [Suspect]
     Active Substance: HYDROCORTISONE ACETATE
     Dosage: 2 ADMINISTRATIONS
     Route: 065
  429. CORTIFOAM [Suspect]
     Active Substance: HYDROCORTISONE ACETATE
     Route: 048
  430. CORTIFOAM [Suspect]
     Active Substance: HYDROCORTISONE ACETATE
     Route: 065
  431. CORTIFOAM [Suspect]
     Active Substance: HYDROCORTISONE ACETATE
     Route: 065
  432. CORTIFOAM [Suspect]
     Active Substance: HYDROCORTISONE ACETATE
     Route: 048
  433. CORTIFOAM [Suspect]
     Active Substance: HYDROCORTISONE ACETATE
     Route: 065
  434. CORTIFOAM [Suspect]
     Active Substance: HYDROCORTISONE ACETATE
     Dosage: AEROSOL, FOAM
     Route: 048
  435. CORTIFOAM [Suspect]
     Active Substance: HYDROCORTISONE ACETATE
     Route: 065
  436. CORTIFOAM [Suspect]
     Active Substance: HYDROCORTISONE ACETATE
     Route: 048
  437. CORTIFOAM [Suspect]
     Active Substance: HYDROCORTISONE ACETATE
     Route: 065
  438. DAPAGLIFLOZIN [Suspect]
     Active Substance: DAPAGLIFLOZIN
     Indication: Cardiac failure chronic
     Dosage: 2 DOSAGE TAKEN
     Route: 065
  439. DAPAGLIFLOZIN [Suspect]
     Active Substance: DAPAGLIFLOZIN
     Indication: Ill-defined disorder
     Route: 048
  440. DAPAGLIFLOZIN [Suspect]
     Active Substance: DAPAGLIFLOZIN
     Route: 065
  441. DAPAGLIFLOZIN [Suspect]
     Active Substance: DAPAGLIFLOZIN
     Dosage: DOSAGE FORM: NOT SPECIFIED
     Route: 065
  442. ENTYVIO [Suspect]
     Active Substance: VEDOLIZUMAB
     Indication: Deep vein thrombosis
     Route: 048
  443. ENTYVIO [Suspect]
     Active Substance: VEDOLIZUMAB
     Indication: Colitis ulcerative
     Route: 048
  444. ENTYVIO [Suspect]
     Active Substance: VEDOLIZUMAB
     Dosage: 2 DOSAGE
     Route: 065
  445. ENTYVIO [Suspect]
     Active Substance: VEDOLIZUMAB
     Dosage: POWDER FOR SOLUTION INTRAVENOUS, 3 DOSAGE TAKEN
     Route: 042
  446. ENTYVIO [Suspect]
     Active Substance: VEDOLIZUMAB
     Dosage: 2 DOSAGE
     Route: 042
  447. ENTYVIO [Suspect]
     Active Substance: VEDOLIZUMAB
     Route: 065
  448. ENTYVIO [Suspect]
     Active Substance: VEDOLIZUMAB
     Dosage: 3 ADMINISTRATIONS
     Route: 042
  449. ENTYVIO [Suspect]
     Active Substance: VEDOLIZUMAB
     Dosage: POWDER FOR SOLUTION INTRAVENOUS
     Route: 065
  450. ENTYVIO [Suspect]
     Active Substance: VEDOLIZUMAB
     Route: 065
  451. ENTYVIO [Suspect]
     Active Substance: VEDOLIZUMAB
     Route: 065
  452. ENTYVIO [Suspect]
     Active Substance: VEDOLIZUMAB
     Route: 065
  453. ENTYVIO [Suspect]
     Active Substance: VEDOLIZUMAB
     Route: 048
  454. ENTYVIO [Suspect]
     Active Substance: VEDOLIZUMAB
     Route: 065
  455. ENTYVIO [Suspect]
     Active Substance: VEDOLIZUMAB
  456. ENTYVIO [Suspect]
     Active Substance: VEDOLIZUMAB
     Dates: start: 2017, end: 2017
  457. ESCITALOPRAM [Suspect]
     Active Substance: ESCITALOPRAM OXALATE
     Indication: Product used for unknown indication
     Route: 065
  458. ESCITALOPRAM [Suspect]
     Active Substance: ESCITALOPRAM OXALATE
     Route: 065
  459. ESOMEPRAZOLE MAGNESIUM [Suspect]
     Active Substance: ESOMEPRAZOLE MAGNESIUM
     Indication: Gastritis
     Route: 065
  460. FELODIPINE [Suspect]
     Active Substance: FELODIPINE
     Indication: Hypertension
     Route: 048
  461. FELODIPINE [Suspect]
     Active Substance: FELODIPINE
     Dosage: 1 EVERY .5 DAYS
     Route: 048
  462. FELODIPINE [Suspect]
     Active Substance: FELODIPINE
     Route: 048
  463. FUROSEMIDE [Suspect]
     Active Substance: FUROSEMIDE
     Indication: Product used for unknown indication
     Dosage: 1 TIME DAILY
     Route: 065
  464. FUROSEMIDE [Suspect]
     Active Substance: FUROSEMIDE
     Route: 065
  465. FUROSEMIDE [Suspect]
     Active Substance: FUROSEMIDE
     Dosage: DOSAGE FORM: NOT SPECIFIED
     Route: 065
  466. GABAPENTIN [Suspect]
     Active Substance: GABAPENTIN
     Indication: Product used for unknown indication
     Route: 065
  467. GABAPENTIN [Suspect]
     Active Substance: GABAPENTIN
     Route: 065
  468. GABAPENTIN [Suspect]
     Active Substance: GABAPENTIN
     Dosage: NOT SPECIFIED
     Route: 065
  469. GABAPENTIN [Suspect]
     Active Substance: GABAPENTIN
     Dosage: 3 TIMES DAILY
     Route: 065
  470. INFLIXIMAB [Suspect]
     Active Substance: INFLIXIMAB
     Indication: Crohn^s disease
     Route: 065
  471. INFLIXIMAB [Suspect]
     Active Substance: INFLIXIMAB
     Indication: Colitis ulcerative
     Route: 065
  472. INFLIXIMAB [Suspect]
     Active Substance: INFLIXIMAB
     Route: 065
  473. INFLIXIMAB [Suspect]
     Active Substance: INFLIXIMAB
     Route: 065
  474. INFLIXIMAB [Suspect]
     Active Substance: INFLIXIMAB
  475. INFLIXIMAB [Suspect]
     Active Substance: INFLIXIMAB
     Route: 042
  476. INFLIXIMAB [Suspect]
     Active Substance: INFLIXIMAB
     Route: 065
  477. INFLIXIMAB [Suspect]
     Active Substance: INFLIXIMAB
  478. INFLIXIMAB [Suspect]
     Active Substance: INFLIXIMAB
  479. INFLIXIMAB [Suspect]
     Active Substance: INFLIXIMAB
  480. INFLIXIMAB [Suspect]
     Active Substance: INFLIXIMAB
     Dosage: 0, 2, 6 WEEKS, THEN EVERY 8 WEEKS
  481. LEVOTHYROXINE SODIUM [Suspect]
     Active Substance: LEVOTHYROXINE SODIUM
     Indication: Product used for unknown indication
     Route: 065
  482. LEVOTHYROXINE SODIUM [Suspect]
     Active Substance: LEVOTHYROXINE SODIUM
     Dosage: DOSAGE FORM: NOT SPECIFIED
     Route: 065
  483. LISDEXAMFETAMINE DIMESYLATE [Suspect]
     Active Substance: LISDEXAMFETAMINE DIMESYLATE
     Indication: Product used for unknown indication
     Route: 065
  484. LISDEXAMFETAMINE DIMESYLATE [Suspect]
     Active Substance: LISDEXAMFETAMINE DIMESYLATE
     Dosage: 4 DOSAGE TAKEN
     Route: 065
  485. LISDEXAMFETAMINE DIMESYLATE [Suspect]
     Active Substance: LISDEXAMFETAMINE DIMESYLATE
     Dosage: 2 DOSAGE TAKEN
     Route: 065
  486. MEBEVERINE HYDROCHLORIDE [Suspect]
     Active Substance: MEBEVERINE HYDROCHLORIDE
     Indication: Product used for unknown indication
     Route: 065
  487. MEBEVERINE HYDROCHLORIDE [Suspect]
     Active Substance: MEBEVERINE HYDROCHLORIDE
     Route: 065
  488. MEBEVERINE HYDROCHLORIDE [Suspect]
     Active Substance: MEBEVERINE HYDROCHLORIDE
     Dosage: 2 DOSAGE TAKEN
     Route: 065
  489. MESALAMINE [Suspect]
     Active Substance: MESALAMINE
     Indication: Colitis ulcerative
     Dosage: 10 DOSAGE TAKEN, ALSO KNOWN AS MESALAMINE
     Route: 048
  490. MESALAMINE [Suspect]
     Active Substance: MESALAMINE
     Dosage: TABLET (DELAYED AND EXTENDED RELEASE)
     Route: 048
  491. MESALAMINE [Suspect]
     Active Substance: MESALAMINE
     Route: 048
  492. MESALAMINE [Suspect]
     Active Substance: MESALAMINE
     Route: 048
  493. MESALAMINE [Suspect]
     Active Substance: MESALAMINE
     Route: 065
  494. MESALAMINE [Suspect]
     Active Substance: MESALAMINE
     Route: 065
  495. MESALAMINE [Suspect]
     Active Substance: MESALAMINE
     Route: 065
  496. MESALAMINE [Suspect]
     Active Substance: MESALAMINE
     Dosage: 2 DOSAGE TAKEN
     Route: 065
  497. MESALAMINE [Suspect]
     Active Substance: MESALAMINE
     Route: 065
  498. MESALAMINE [Suspect]
     Active Substance: MESALAMINE
     Route: 065
  499. MESALAMINE [Suspect]
     Active Substance: MESALAMINE
     Route: 065
  500. MESALAMINE [Suspect]
     Active Substance: MESALAMINE
     Route: 065
  501. MESALAMINE [Suspect]
     Active Substance: MESALAMINE
     Dosage: 2 DOSAGE TAKEN
     Route: 065
  502. MESALAMINE [Suspect]
     Active Substance: MESALAMINE
     Route: 065
  503. MESALAMINE [Suspect]
     Active Substance: MESALAMINE
     Route: 065
  504. MESALAMINE [Suspect]
     Active Substance: MESALAMINE
     Route: 065
  505. MESALAMINE [Suspect]
     Active Substance: MESALAMINE
     Route: 065
  506. OMEPRAZOLE [Suspect]
     Active Substance: OMEPRAZOLE
     Indication: Product used for unknown indication
     Dosage: 2 TIMES DAILY
     Route: 065
  507. OMEPRAZOLE [Suspect]
     Active Substance: OMEPRAZOLE
     Route: 065
  508. OXYCODONE [Suspect]
     Active Substance: OXYCODONE
     Indication: Product used for unknown indication
     Route: 065
  509. PARA-AMINOSALICYLIC ACID [Suspect]
     Active Substance: AMINOSALICYLIC ACID
     Indication: Deep vein thrombosis
     Dosage: 2 DOSAGE TAKEN
     Route: 065
  510. PARA-AMINOSALICYLIC ACID [Suspect]
     Active Substance: AMINOSALICYLIC ACID
     Indication: Colitis ulcerative
     Route: 048
  511. PARA-AMINOSALICYLIC ACID [Suspect]
     Active Substance: AMINOSALICYLIC ACID
     Indication: Product used for unknown indication
  512. PREDNISONE [Suspect]
     Active Substance: PREDNISONE
     Indication: Colitis ulcerative
     Dosage: 2 DOSAGE TAKEN
     Route: 065
  513. PREDNISONE [Suspect]
     Active Substance: PREDNISONE
     Route: 065
  514. PREDNISONE [Suspect]
     Active Substance: PREDNISONE
     Dosage: NOT SPECIFIED
     Route: 065
  515. PREDNISONE [Suspect]
     Active Substance: PREDNISONE
     Dosage: 2 DOSAGE TAKEN
     Route: 065
  516. PREDNISONE [Suspect]
     Active Substance: PREDNISONE
     Dosage: TAPERED DOSE IN 2009
     Route: 065
     Dates: start: 2009, end: 2009
  517. REMICADE [Suspect]
     Active Substance: INFLIXIMAB
     Indication: Crohn^s disease
     Dosage: POWDER FOR SOLUTION INTRAVENOUS
     Route: 065
  518. REMICADE [Suspect]
     Active Substance: INFLIXIMAB
     Indication: Colitis ulcerative
     Route: 065
  519. REMICADE [Suspect]
     Active Substance: INFLIXIMAB
     Route: 065
  520. REMICADE [Suspect]
     Active Substance: INFLIXIMAB
     Route: 065
  521. ROSUVASTATIN [Suspect]
     Active Substance: ROSUVASTATIN
     Indication: Blood cholesterol increased
     Route: 065
  522. ROSUVASTATIN [Suspect]
     Active Substance: ROSUVASTATIN
     Indication: Ill-defined disorder
     Route: 065
  523. ROSUVASTATIN [Suspect]
     Active Substance: ROSUVASTATIN
     Dosage: NOT SPECIFIED
     Route: 065
  524. ROSUVASTATIN [Suspect]
     Active Substance: ROSUVASTATIN
     Dosage: ROSUVASTATIN CALCIUM, 6 DOSAGE TAKEN
     Route: 065
  525. ROSUVASTATIN [Suspect]
     Active Substance: ROSUVASTATIN
     Dosage: ROSUVASTATIN CALCIUM, 4 DOSAGE TAKEN
     Route: 065
  526. MESALAMINE [Suspect]
     Active Substance: MESALAMINE
     Indication: Product used for unknown indication
     Route: 048
  527. TOZINAMERAN [Suspect]
     Active Substance: TOZINAMERAN
     Indication: Product used for unknown indication
     Route: 065
  528. TOZINAMERAN [Suspect]
     Active Substance: TOZINAMERAN
     Dosage: DOSE 3
     Route: 065
     Dates: start: 20220322, end: 20220322
  529. VYVANSE [Suspect]
     Active Substance: LISDEXAMFETAMINE DIMESYLATE
     Indication: Attention deficit hyperactivity disorder
     Dosage: CHEWABLE TABLET
     Route: 065
  530. WARFARIN [Suspect]
     Active Substance: WARFARIN
     Indication: Deep vein thrombosis
     Dosage: 2 DOSAGE TAKEN
     Route: 065
  531. WARFARIN [Suspect]
     Active Substance: WARFARIN
     Indication: Colitis ulcerative
     Route: 065
  532. WARFARIN [Suspect]
     Active Substance: WARFARIN
     Route: 065
  533. WARFARIN [Suspect]
     Active Substance: WARFARIN
     Dosage: WARFARIN SODIUM, 6 DOSAGE TAKEN
     Route: 048
  534. WARFARIN [Suspect]
     Active Substance: WARFARIN
     Dosage: WARFARIN SODIUM, 5 DOSAGE TAKEN
     Route: 065
  535. WARFARIN [Suspect]
     Active Substance: WARFARIN
     Dosage: WARFARIN SODIUM,
     Route: 048
  536. WARFARIN [Suspect]
     Active Substance: WARFARIN
     Dosage: WARFARIN SODIUM,
     Route: 048
  537. WARFARIN [Suspect]
     Active Substance: WARFARIN
     Dosage: WARFARIN SODIUM, 2 DOSAGE TAKEN
     Route: 048
  538. WARFARIN [Suspect]
     Active Substance: WARFARIN
     Dosage: 2 DOSAGE TAKEN;WARFARIN SODIUM
     Route: 065
  539. WARFARIN [Suspect]
     Active Substance: WARFARIN
     Dosage: WARFARIN SODIUM
     Route: 048
  540. WARFARIN [Suspect]
     Active Substance: WARFARIN
     Dosage: WARFARIN SODIUM
     Route: 048
  541. HUMIRA [Suspect]
     Active Substance: ADALIMUMAB
     Indication: Crohn^s disease
     Route: 065
  542. HUMIRA [Suspect]
     Active Substance: ADALIMUMAB
     Dosage: SOLUTION SUBCUTANEOUS, 1 EVERY 8 WEEKS
     Route: 065
  543. HUMIRA [Suspect]
     Active Substance: ADALIMUMAB
     Route: 065
  544. HUMIRA [Suspect]
     Active Substance: ADALIMUMAB
     Route: 065
  545. LISDEXAMFETAMINE DIMESYLATE [Suspect]
     Active Substance: LISDEXAMFETAMINE DIMESYLATE
     Indication: Product used for unknown indication
     Route: 065
  546. TAMSULOSIN HYDROCHLORIDE [Concomitant]
     Active Substance: TAMSULOSIN HYDROCHLORIDE
     Indication: Product used for unknown indication
  547. RAMIPRIL [Concomitant]
     Active Substance: RAMIPRIL
     Indication: Product used for unknown indication
  548. PRAVASTATIN [Concomitant]
     Active Substance: PRAVASTATIN
     Indication: Product used for unknown indication
  549. NAPHAZOLINE HYDROCHLORIDE [Concomitant]
     Active Substance: NAPHAZOLINE HYDROCHLORIDE
     Indication: Product used for unknown indication
  550. MINERAL OIL [Concomitant]
     Active Substance: MINERAL OIL
     Indication: Product used for unknown indication
  551. LYRICA [Concomitant]
     Active Substance: PREGABALIN
     Indication: Product used for unknown indication
  552. LANSOPRAZOLE [Concomitant]
     Active Substance: LANSOPRAZOLE
     Indication: Product used for unknown indication
     Dosage: DELAYED RELEASE
  553. ATORVASTATIN [Concomitant]
     Active Substance: ATORVASTATIN
     Indication: Product used for unknown indication
  554. XELJANZ [Concomitant]
     Active Substance: TOFACITINIB CITRATE
     Indication: Product used for unknown indication
  555. XELJANZ [Concomitant]
     Active Substance: TOFACITINIB CITRATE
     Route: 048
  556. XELJANZ [Concomitant]
     Active Substance: TOFACITINIB CITRATE
     Route: 048
  557. TOFACITINIB CITRATE [Concomitant]
     Active Substance: TOFACITINIB CITRATE
     Indication: Product used for unknown indication
  558. METHOTREXATE [Concomitant]
     Active Substance: METHOTREXATE
     Indication: Product used for unknown indication
  559. HUMIRA [Concomitant]
     Active Substance: ADALIMUMAB
     Indication: Product used for unknown indication
  560. ACETAMINOPHEN [Concomitant]
     Active Substance: ACETAMINOPHEN
     Indication: Ill-defined disorder
     Route: 065
  561. ACETAMINOPHEN [Concomitant]
     Active Substance: ACETAMINOPHEN
     Route: 065
  562. ALGINIC ACID [Concomitant]
     Active Substance: ALGINIC ACID
     Indication: Product used for unknown indication
     Route: 065
  563. ALUMINUM HYDROXIDE\SODIUM ALGINATE [Concomitant]
     Active Substance: ALUMINUM HYDROXIDE\SODIUM ALGINATE
     Indication: Product used for unknown indication
     Route: 065
  564. AMLODIPINE [Concomitant]
     Active Substance: AMLODIPINE BESYLATE
     Indication: Product used for unknown indication
     Route: 065
  565. AMLODIPINE [Concomitant]
     Active Substance: AMLODIPINE BESYLATE
     Dosage: AMLODIPINE BESYLATE
     Route: 065
  566. AMLODIPINE [Concomitant]
     Active Substance: AMLODIPINE BESYLATE
     Dosage: 2 DOSAGE TAKEN
     Route: 065
  567. AMLODIPINE [Concomitant]
     Active Substance: AMLODIPINE BESYLATE
     Dosage: 2 DOSAGE TAKEN
     Route: 065
  568. AMLODIPINE [Concomitant]
     Active Substance: AMLODIPINE BESYLATE
     Dosage: 2 DOSAGE TAKEN
     Route: 065
  569. AMLODIPINE [Concomitant]
     Active Substance: AMLODIPINE BESYLATE
     Dosage: 2 DOSAGE TAKEN
     Route: 065
  570. AMLODIPINE [Concomitant]
     Active Substance: AMLODIPINE BESYLATE
     Dosage: AMLODIPINE BESYLATE
     Route: 065
  571. AMLODIPINE [Concomitant]
     Active Substance: AMLODIPINE BESYLATE
     Route: 065
  572. ATORVASTATIN CALCIUM [Concomitant]
     Active Substance: ATORVASTATIN CALCIUM
     Indication: Product used for unknown indication
     Route: 065
  573. ATORVASTATIN CALCIUM [Concomitant]
     Active Substance: ATORVASTATIN CALCIUM
     Route: 065
  574. ATORVASTATIN CALCIUM [Concomitant]
     Active Substance: ATORVASTATIN CALCIUM
     Route: 048
  575. ATORVASTATIN CALCIUM [Concomitant]
     Active Substance: ATORVASTATIN CALCIUM
     Dosage: ATORVASTATIN CALCIUM PROPYLENE GLYCOL SOLVATE
     Route: 065
  576. BETNOVATE [Concomitant]
     Active Substance: BETAMETHASONE
     Indication: Product used for unknown indication
     Dosage: NOT SPECIFIED
     Route: 065
  577. BISOPROLOL [Concomitant]
     Active Substance: BISOPROLOL
     Indication: Product used for unknown indication
     Route: 065
  578. CALCIUM CARBONATE [Concomitant]
     Active Substance: CALCIUM CARBONATE
     Indication: Product used for unknown indication
     Dosage: 6 DOSAGE TAKEN
     Route: 065
  579. CALCIUM CARBONATE [Concomitant]
     Active Substance: CALCIUM CARBONATE
     Dosage: DOSAGE FORM: NOT SPECIFIED
     Route: 065
  580. CALCIUM CARBONATE\CHOLECALCIFEROL [Concomitant]
     Active Substance: CALCIUM CARBONATE\CHOLECALCIFEROL
     Indication: Product used for unknown indication
     Dosage: 4 DOSAGE TAKEN
     Route: 065
  581. CALCIUM CARBONATE\CHOLECALCIFEROL [Concomitant]
     Active Substance: CALCIUM CARBONATE\CHOLECALCIFEROL
     Route: 065
  582. CITALOPRAM HYDROBROMIDE [Concomitant]
     Active Substance: CITALOPRAM HYDROBROMIDE
     Indication: Product used for unknown indication
     Route: 065
  583. CLOBETASONE BUTYRATE [Concomitant]
     Active Substance: CLOBETASONE BUTYRATE
     Indication: Ill-defined disorder
     Dosage: 3 DOSAGE TAKEN
     Route: 065
  584. DORZOLAMIDE [Concomitant]
     Active Substance: DORZOLAMIDE
     Indication: Product used for unknown indication
     Dosage: SOLUTION OPHTHALMIC
     Route: 065
  585. EMPAGLIFLOZIN [Concomitant]
     Active Substance: EMPAGLIFLOZIN
     Indication: Ill-defined disorder
     Dosage: 9 DOSAGE ADMINISTERED
     Route: 065
  586. FOLIC ACID [Concomitant]
     Active Substance: FOLIC ACID
     Indication: Product used for unknown indication
  587. LATANOPROST [Concomitant]
     Active Substance: LATANOPROST
     Indication: Product used for unknown indication
  588. NITROFURANTOIN [Concomitant]
     Active Substance: NITROFURANTOIN
     Indication: Product used for unknown indication
  589. RIVAROXABAN [Concomitant]
     Active Substance: RIVAROXABAN
     Indication: Product used for unknown indication
  590. RIVAROXABAN [Concomitant]
     Active Substance: RIVAROXABAN
  591. RIVAROXABAN [Concomitant]
     Active Substance: RIVAROXABAN
  592. RIVAROXABAN [Concomitant]
     Active Substance: RIVAROXABAN

REACTIONS (53)
  - Frequent bowel movements [Not Recovered/Not Resolved]
  - Weight decreased [Not Recovered/Not Resolved]
  - Impaired quality of life [Not Recovered/Not Resolved]
  - Deep vein thrombosis [Not Recovered/Not Resolved]
  - Colitis ulcerative [Not Recovered/Not Resolved]
  - Bronchiectasis [Not Recovered/Not Resolved]
  - Loss of personal independence in daily activities [Not Recovered/Not Resolved]
  - Condition aggravated [Not Recovered/Not Resolved]
  - Haematochezia [Not Recovered/Not Resolved]
  - Impaired work ability [Not Recovered/Not Resolved]
  - Rectal haemorrhage [Not Recovered/Not Resolved]
  - Steroid dependence [Not Recovered/Not Resolved]
  - Stress [Not Recovered/Not Resolved]
  - Abdominal discomfort [Not Recovered/Not Resolved]
  - Arthritis [Not Recovered/Not Resolved]
  - Burns second degree [Not Recovered/Not Resolved]
  - COVID-19 [Not Recovered/Not Resolved]
  - Cardiac murmur [Not Recovered/Not Resolved]
  - Catarrh [Not Recovered/Not Resolved]
  - Cerebrovascular accident [Not Recovered/Not Resolved]
  - Confusional state [Not Recovered/Not Resolved]
  - Depression [Not Recovered/Not Resolved]
  - Dysgeusia [Not Recovered/Not Resolved]
  - Eczema [Not Recovered/Not Resolved]
  - Fatigue [Not Recovered/Not Resolved]
  - Gingival pain [Not Recovered/Not Resolved]
  - Headache [Not Recovered/Not Resolved]
  - Hypopnoea [Not Recovered/Not Resolved]
  - Migraine [Not Recovered/Not Resolved]
  - Nightmare [Not Recovered/Not Resolved]
  - Pain [Not Recovered/Not Resolved]
  - Pain in extremity [Not Recovered/Not Resolved]
  - Palpitations [Not Recovered/Not Resolved]
  - Parosmia [Not Recovered/Not Resolved]
  - Pulmonary embolism [Not Recovered/Not Resolved]
  - Pyrexia [Not Recovered/Not Resolved]
  - Rash [Not Recovered/Not Resolved]
  - Rhinitis [Not Recovered/Not Resolved]
  - Somnolence [Not Recovered/Not Resolved]
  - Swollen tongue [Not Recovered/Not Resolved]
  - Systemic lupus erythematosus [Not Recovered/Not Resolved]
  - Tinnitus [Not Recovered/Not Resolved]
  - Tubulointerstitial nephritis [Not Recovered/Not Resolved]
  - Vertigo [Not Recovered/Not Resolved]
  - Adverse drug reaction [Not Recovered/Not Resolved]
  - Alcohol poisoning [Not Recovered/Not Resolved]
  - Drug ineffective [Not Recovered/Not Resolved]
  - Accidental overdose [Not Recovered/Not Resolved]
  - Intentional product use issue [Not Recovered/Not Resolved]
  - Inappropriate schedule of product administration [Not Recovered/Not Resolved]
  - Off label use [Not Recovered/Not Resolved]
  - Product use in unapproved indication [Not Recovered/Not Resolved]
  - Medication error [Not Recovered/Not Resolved]

NARRATIVE: CASE EVENT DATE: 20080101
